FAERS Safety Report 20517515 (Version 1)
Quarter: 2022Q1

REPORT INFORMATION
  Report Type: Spontaneous
  Country: US (occurrence: None)
  Receive Date: 20220224
  Receipt Date: 20220224
  Transmission Date: 20220424
  Serious: Yes (Hospitalization)
  Sender: FDA-Public Use
  Company Number: None

PATIENT
  Age: 75 Year
  Sex: Male

DRUGS (1)
  1. APIXABAN [Suspect]
     Active Substance: APIXABAN
     Indication: Atrial fibrillation
     Dosage: 5 MG BID PO
     Route: 048
     Dates: end: 202112

REACTIONS (7)
  - Oedema peripheral [None]
  - Oedema peripheral [None]
  - Dyspnoea exertional [None]
  - Arteriovenous fistula site complication [None]
  - Jugular vein thrombosis [None]
  - Treatment failure [None]
  - Dialysis [None]

NARRATIVE: CASE EVENT DATE: 20211212
